FAERS Safety Report 25810733 (Version 1)
Quarter: 2025Q3

REPORT INFORMATION
  Report Type: Spontaneous
  Country: AU (occurrence: AU)
  Receive Date: 20250917
  Receipt Date: 20250917
  Transmission Date: 20251020
  Serious: Yes (Hospitalization)
  Sender: CHEPLAPHARM
  Company Number: AU-CHEPLA-2025010754

PATIENT
  Age: 52 Year
  Sex: Female

DRUGS (3)
  1. OLANZAPINE [Suspect]
     Active Substance: OLANZAPINE
  2. MIDAZOLAM [Suspect]
     Active Substance: MIDAZOLAM
     Indication: Delirium
     Route: 042
  3. MIDAZOLAM [Suspect]
     Active Substance: MIDAZOLAM
     Indication: Post-injection delirium sedation syndrome
     Route: 042

REACTIONS (3)
  - Post-injection delirium sedation syndrome [Recovered/Resolved]
  - Off label use [Unknown]
  - Toxicity to various agents [Recovered/Resolved]
